FAERS Safety Report 7371261-4 (Version None)
Quarter: 2011Q1

REPORT INFORMATION
  Report Type: 
  Country: None (occurrence: None)
  Receive Date: 20110321
  Receipt Date: 20110321
  Transmission Date: 20110831
  Serious: No
  Sender: FDA-Public Use
  Company Number: None

PATIENT
  Age: 37 Year
  Sex: Male
  Weight: 136.0791 kg

DRUGS (1)
  1. LEVAQUIN [Suspect]
     Indication: PNEUMONIA
     Dosage: 1 PILL PER DAY FRO 5 DAYS
     Dates: start: 20110228, end: 20110308

REACTIONS (3)
  - ABASIA [None]
  - ARTHRALGIA [None]
  - JOINT SWELLING [None]
